FAERS Safety Report 7210171-X (Version None)
Quarter: 2011Q1

REPORT INFORMATION
  Report Type: 
  Country: None (occurrence: None)
  Receive Date: 20110105
  Receipt Date: 20101227
  Transmission Date: 20110831
  Serious: Yes (Death, Hospitalization, Disabling)
  Sender: FDA-Public Use
  Company Number: JP-JNJFOC-20101000468

PATIENT
  Sex: Female
  Weight: 69 kg

DRUGS (16)
  1. ALBUMIN (HUMAN) [Concomitant]
     Indication: HEPATIC FUNCTION ABNORMAL
     Route: 042
  2. KAYEXALATE [Concomitant]
     Indication: RENAL FAILURE CHRONIC
     Route: 048
  3. LOXONIN [Suspect]
     Indication: ILL-DEFINED DISORDER
     Route: 048
  4. PAXIL [Concomitant]
     Route: 048
  5. LASIX [Concomitant]
     Indication: HEPATIC FUNCTION ABNORMAL
     Route: 042
  6. OXINORM [Concomitant]
     Route: 048
  7. HEPARIN [Concomitant]
     Indication: PROPHYLAXIS
     Route: 061
  8. DOXIL [Suspect]
     Indication: OVARIAN CANCER RECURRENT
     Route: 042
  9. NEO-MINOPHAGEN C [Concomitant]
     Indication: HEPATIC FUNCTION ABNORMAL
     Route: 042
  10. CALCICOL [Concomitant]
     Indication: RENAL FAILURE CHRONIC
     Route: 042
  11. OXYCONTIN [Concomitant]
     Route: 048
  12. GASPORT [Concomitant]
     Route: 048
  13. FENTANYL [Concomitant]
     Route: 042
  14. MEYLON [Concomitant]
     Indication: RENAL FAILURE CHRONIC
     Route: 042
  15. PURSENNID [Concomitant]
     Route: 048
  16. KALIMATE [Concomitant]
     Indication: HYPERKALAEMIA
     Route: 048

REACTIONS (3)
  - HEPATIC FUNCTION ABNORMAL [None]
  - OVARIAN CANCER [None]
  - RENAL FAILURE CHRONIC [None]
